FAERS Safety Report 14038294 (Version 1)
Quarter: 2017Q4

REPORT INFORMATION
  Report Type: Spontaneous
  Country: US (occurrence: US)
  Receive Date: 20171004
  Receipt Date: 20171004
  Transmission Date: 20180321
  Serious: No
  Sender: FDA-Public Use
  Company Number: US-GALDERMA-US17007148

PATIENT
  Age: 76 Year
  Sex: Female

DRUGS (1)
  1. MIRVASO [Suspect]
     Active Substance: BRIMONIDINE TARTRATE
     Indication: ROSACEA
     Route: 061
     Dates: start: 201708, end: 20170821

REACTIONS (5)
  - Pain of skin [Recovering/Resolving]
  - Erythema [Recovering/Resolving]
  - Rebound effect [Recovering/Resolving]
  - Rosacea [Recovering/Resolving]
  - Skin irritation [Recovering/Resolving]

NARRATIVE: CASE EVENT DATE: 201708
